FAERS Safety Report 4699829-4 (Version None)
Quarter: 2005Q2

REPORT INFORMATION
  Report Type: 
  Country: None (occurrence: None)
  Receive Date: 20050623
  Receipt Date: 20050614
  Transmission Date: 20051028
  Serious: Yes (Death, Life-Threatening, Hospitalization)
  Sender: FDA-Public Use
  Company Number: HQ2724714JUN2002

PATIENT
  Age: 67 Year
  Sex: Female

DRUGS (17)
  1. MYLOTARG [Suspect]
     Indication: ACUTE MYELOID LEUKAEMIA
     Dosage: INTRAVENOUS
     Route: 042
     Dates: start: 20020605, end: 20020605
  2. MYLOTARG [Suspect]
     Indication: ACUTE MYELOID LEUKAEMIA
     Dosage: INTRAVENOUS
     Route: 042
     Dates: start: 20020619, end: 20020619
  3. BISACODYL (BISACODYL) [Concomitant]
  4. GABAPENTIN [Concomitant]
  5. PROTONIX [Concomitant]
  6. OXYCODONE HCL [Concomitant]
  7. PREMARIN [Concomitant]
  8. FENTANYL [Concomitant]
  9. INSULIN [Concomitant]
  10. SYNTHROID [Concomitant]
  11. MEDROXYPROGESTERONE [Concomitant]
  12. ZOLOFT [Concomitant]
  13. METHYLPREDNISOLONE [Concomitant]
  14. HEPARIN LOCK FLUSH SOLUTION, USP (HEPARIN SODIUM) [Concomitant]
  15. BACLOFEN [Concomitant]
  16. AMOXICILLIN [Concomitant]
  17. LASIX [Concomitant]

REACTIONS (30)
  - ABDOMINAL DISTENSION [None]
  - ABDOMINAL PAIN [None]
  - ANOREXIA [None]
  - APNOEA [None]
  - ASTHENIA [None]
  - ATRIAL FIBRILLATION [None]
  - BLOOD PRESSURE INCREASED [None]
  - BOWEL SOUNDS ABNORMAL [None]
  - DEPRESSED LEVEL OF CONSCIOUSNESS [None]
  - ELECTROCARDIOGRAM POOR R-WAVE PROGRESSION [None]
  - ELECTROCARDIOGRAM Q WAVE ABNORMAL [None]
  - ELECTROCARDIOGRAM T WAVE AMPLITUDE DECREASED [None]
  - ELECTROMECHANICAL DISSOCIATION [None]
  - HEADACHE [None]
  - HEPATIC FAILURE [None]
  - METABOLIC ACIDOSIS [None]
  - MULTI-ORGAN FAILURE [None]
  - MYALGIA [None]
  - MYOCARDIAL INFARCTION [None]
  - NAUSEA [None]
  - OBESITY [None]
  - PANCYTOPENIA [None]
  - PLEURAL EFFUSION [None]
  - PNEUMONIA [None]
  - PULMONARY OEDEMA [None]
  - PYREXIA [None]
  - RENAL FAILURE [None]
  - RESPIRATORY FAILURE [None]
  - SUPRAVENTRICULAR EXTRASYSTOLES [None]
  - VOMITING [None]
